FAERS Safety Report 8689577 (Version 2)
Quarter: 2013Q4

REPORT INFORMATION
  Report Type: Spontaneous
  Country: US (occurrence: US)
  Receive Date: 20120727
  Receipt Date: 20131031
  Transmission Date: 20140711
  Serious: Yes (Hospitalization, Other)
  Sender: FDA-Public Use
  Company Number: US-009507513-1207USA010254

PATIENT
  Age: 65 Year
  Sex: Male

DRUGS (5)
  1. JANUVIA [Suspect]
     Route: 048
  2. VICTOZA [Suspect]
     Dosage: 0.6 MG, QD
     Route: 058
  3. VICTOZA [Suspect]
     Dosage: 1.2 UNK, UNK
     Route: 058
  4. VICTOZA [Suspect]
     Dosage: 0.9 UNK, UNK
     Route: 058
  5. GLYBURIDE [Suspect]
     Route: 048

REACTIONS (7)
  - Hyperbilirubinaemia [Unknown]
  - Cholecystitis chronic [Unknown]
  - Alanine aminotransferase increased [Unknown]
  - Cholelithiasis [Unknown]
  - Blood alkaline phosphatase increased [Unknown]
  - Drug interaction [Unknown]
  - Aspartate aminotransferase increased [Unknown]
